FAERS Safety Report 17984756 (Version 2)
Quarter: 2021Q2

REPORT INFORMATION
  Report Type: Spontaneous
  Country: US (occurrence: US)
  Receive Date: 20200706
  Receipt Date: 20210629
  Transmission Date: 20210717
  Serious: Yes (Hospitalization)
  Sender: FDA-Public Use
  Company Number: US-TEVA-2020-US-1796932

PATIENT
  Age: 23 Month
  Sex: Male

DRUGS (2)
  1. AMOXICILLIN. [Suspect]
     Active Substance: AMOXICILLIN
     Indication: OTITIS MEDIA ACUTE
  2. AMOXICILLIN. [Suspect]
     Active Substance: AMOXICILLIN
     Indication: GASTROENTERITIS VIRAL
     Dosage: 90 MG/KG DAILY;
     Route: 065
     Dates: start: 2018

REACTIONS (8)
  - Crystal nephropathy [Recovering/Resolving]
  - Fluid overload [Recovering/Resolving]
  - Ureteric obstruction [Recovering/Resolving]
  - Metabolic acidosis [Recovering/Resolving]
  - Weight increased [Recovered/Resolved]
  - Acute kidney injury [Recovering/Resolving]
  - Hypertension [Recovered/Resolved]
  - Hydronephrosis [Recovering/Resolving]

NARRATIVE: CASE EVENT DATE: 2018
